FAERS Safety Report 12409048 (Version 1)
Quarter: 2016Q2

REPORT INFORMATION
  Report Type: Spontaneous
  Country: FR (occurrence: FR)
  Receive Date: 20160526
  Receipt Date: 20160526
  Transmission Date: 20160815
  Serious: Yes (Death, Hospitalization)
  Sender: FDA-Public Use
  Company Number: FR-ELI_LILLY_AND_COMPANY-FR201605007752

PATIENT
  Age: 50 Year
  Sex: Female

DRUGS (22)
  1. LEVOTHYROX [Concomitant]
     Active Substance: LEVOTHYROXINE
     Dosage: UNK
  2. LASILIX                            /00032601/ [Concomitant]
     Active Substance: FUROSEMIDE
     Dosage: UNK
  3. RISPERDAL [Suspect]
     Active Substance: RISPERIDONE
     Indication: AGITATION
     Dosage: UNK, UNKNOWN
     Route: 048
     Dates: start: 20160216
  4. TIAPRIDAL [Suspect]
     Active Substance: TIAPRIDE HYDROCHLORIDE
     Indication: CONFUSIONAL STATE
     Dosage: UNK, UNKNOWN
     Route: 048
     Dates: start: 20160208, end: 20160311
  5. AMIODARONE [Concomitant]
     Active Substance: AMIODARONE
     Dosage: UNK
  6. INEXIUM                            /01479302/ [Concomitant]
     Active Substance: ESOMEPRAZOLE MAGNESIUM
     Dosage: UNK
  7. MACROGOL [Concomitant]
     Active Substance: POLYETHYLENE GLYCOLS
     Dosage: UNK
  8. CYMBALTA [Suspect]
     Active Substance: DULOXETINE HYDROCHLORIDE
     Indication: AFFECTIVE DISORDER
     Dosage: UNK, UNKNOWN
     Route: 048
     Dates: end: 20160208
  9. SIFROL [Suspect]
     Active Substance: PRAMIPEXOLE
     Indication: PRODUCT USED FOR UNKNOWN INDICATION
     Dosage: UNK, UNKNOWN
     Route: 065
     Dates: end: 20160208
  10. HEPATITIS B SURFACE ANTIGEN [Concomitant]
     Active Substance: HEPATITIS B VIRUS HBSAG SURFACE PROTEIN ANTIGEN
     Dosage: UNK
  11. COUMADINE [Suspect]
     Active Substance: WARFARIN SODIUM
     Indication: CARDIAC PACEMAKER INSERTION
     Dosage: UNK, UNKNOWN
     Route: 048
  12. OFLOCET /00731802/ [Suspect]
     Active Substance: OFLOXACIN
     Indication: OTORRHOEA
     Dosage: UNK, UNKNOWN
     Route: 065
     Dates: start: 20160305, end: 20160311
  13. CORTAN                             /00016202/ [Concomitant]
     Dosage: UNK
  14. PREVENAR [Concomitant]
     Active Substance: PNEUMOCOCCAL 7-VALENT CONJUGATE VACCINE (DIPHTHERIA CRM197 PROTEIN)
     Dosage: UNK
     Dates: start: 20160303, end: 20160303
  15. MENINGITEC [Concomitant]
     Active Substance: NEISSERIA MENINGITIDIS GROUP C CAPSULAR POLYSACCHARIDE ANTIGEN
     Dosage: UNK
     Dates: start: 20160304, end: 20160304
  16. KARDEGIC [Concomitant]
     Active Substance: ASPIRIN LYSINE
     Dosage: UNK
  17. RISPERDAL [Suspect]
     Active Substance: RISPERIDONE
     Dosage: 1 MG, TID
     Route: 065
     Dates: end: 20160314
  18. RAMPRIL [Concomitant]
     Dosage: UNK
  19. OROCAL D3 [Concomitant]
     Active Substance: CALCIUM CARBONATE\CHOLECALCIFEROL
     Dosage: UNK
  20. DAFALGAN [Concomitant]
     Active Substance: ACETAMINOPHEN
     Dosage: UNK
  21. VALIUM [Concomitant]
     Active Substance: DIAZEPAM
     Dosage: UNK
  22. RIVOTRIL [Concomitant]
     Active Substance: CLONAZEPAM
     Dosage: UNK

REACTIONS (15)
  - Asphyxia [Fatal]
  - Joint range of motion decreased [Unknown]
  - Hallucination, visual [Recovered/Resolved]
  - Respiratory arrest [Fatal]
  - Disinhibition [Recovering/Resolving]
  - Logorrhoea [Unknown]
  - Myoclonus [Unknown]
  - Completed suicide [Fatal]
  - Incoherent [Unknown]
  - Memory impairment [Unknown]
  - Aggression [Recovering/Resolving]
  - Confusional state [Recovered/Resolved]
  - Echolalia [Unknown]
  - Psychomotor hyperactivity [Recovering/Resolving]
  - Neuropsychiatric lupus [Unknown]

NARRATIVE: CASE EVENT DATE: 20160314
